FAERS Safety Report 11125593 (Version 6)
Quarter: 2016Q3

REPORT INFORMATION
  Report Type: Spontaneous
  Country: CA (occurrence: CA)
  Receive Date: 20150520
  Receipt Date: 20160720
  Transmission Date: 20161109
  Serious: Yes (Life-Threatening, Hospitalization)
  Sender: FDA-Public Use
  Company Number: PHHY2015CA059873

PATIENT
  Age: 37 Year
  Sex: Female

DRUGS (14)
  1. MORPHINE SULFATE. [Interacting]
     Active Substance: MORPHINE SULFATE
     Indication: PRODUCT USED FOR UNKNOWN INDICATION
     Dosage: 1 MG, UNK
     Route: 037
  2. MORPHINE SULFATE. [Interacting]
     Active Substance: MORPHINE SULFATE
     Dosage: 1 MG, UNK
     Route: 042
  3. HYDROMORPHONE [Interacting]
     Active Substance: HYDROMORPHONE
     Indication: PRODUCT USED FOR UNKNOWN INDICATION
     Dosage: 2 MG (0.4MG, 1.0MG, 0.5MG, 0.1MG), QD
     Route: 065
  4. PARACETAMOL [Interacting]
     Active Substance: ACETAMINOPHEN
     Indication: PRODUCT USED FOR UNKNOWN INDICATION
     Dosage: 4 DF, QD
     Route: 051
  5. MORPHINE [Interacting]
     Active Substance: MORPHINE
     Dosage: 2 MG, UNK
     Route: 065
  6. NALOXONE [Interacting]
     Active Substance: NALOXONE
     Indication: PRODUCT USED FOR UNKNOWN INDICATION
     Dosage: 0.28 MG, UNK
     Route: 065
  7. FENTANYL. [Interacting]
     Active Substance: FENTANYL
     Indication: PRODUCT USED FOR UNKNOWN INDICATION
     Dosage: 0.01 MG, UNK
     Route: 037
  8. BUPIVACAINE. [Interacting]
     Active Substance: BUPIVACAINE
     Indication: PRODUCT USED FOR UNKNOWN INDICATION
     Dosage: 0.75 %, UNK
     Route: 008
  9. KETOROLAC [Interacting]
     Active Substance: KETOROLAC\KETOROLAC TROMETHAMINE
     Indication: PRODUCT USED FOR UNKNOWN INDICATION
     Dosage: 30.0 MG, UNK
     Route: 042
  10. DICLOFENAC [Suspect]
     Active Substance: DICLOFENAC
     Indication: PRODUCT USED FOR UNKNOWN INDICATION
     Dosage: 50 MG, TID
     Route: 065
  11. MORPHINE [Interacting]
     Active Substance: MORPHINE
     Indication: PRODUCT USED FOR UNKNOWN INDICATION
     Dosage: 2.0 MG, UNK
     Route: 058
  12. MORPHINE [Interacting]
     Active Substance: MORPHINE
     Dosage: 1.0 MG, UNK
     Route: 042
  13. MORPHINE [Interacting]
     Active Substance: MORPHINE
     Dosage: 0.1 MG, UNK
     Route: 037
  14. MORPHINE SULFATE. [Interacting]
     Active Substance: MORPHINE SULFATE
     Dosage: 2.0 MG, UNK
     Route: 058

REACTIONS (6)
  - Respiratory depression [Unknown]
  - Unresponsive to stimuli [Unknown]
  - Blood pressure increased [Unknown]
  - Drug interaction [Unknown]
  - Maternal exposure during pregnancy [Unknown]
  - Respiratory rate decreased [Unknown]
